FAERS Safety Report 14066760 (Version 1)
Quarter: 2017Q4

REPORT INFORMATION
  Report Type: Spontaneous
  Country: US (occurrence: US)
  Receive Date: 20171009
  Receipt Date: 20171009
  Transmission Date: 20180321
  Serious: Yes (Other)
  Sender: FDA-Public Use
  Company Number: US-BAYER-2017-190662

PATIENT
  Age: 40 Year
  Sex: Female

DRUGS (1)
  1. GADAVIST [Suspect]
     Active Substance: GADOBUTROL
     Indication: BREAST MASS
     Dosage: 9 ML, ONCE
     Route: 042
     Dates: start: 20171002, end: 20171002

REACTIONS (4)
  - Nausea [Recovered/Resolved]
  - Regurgitation [Recovered/Resolved]
  - Loss of consciousness [Recovered/Resolved]
  - Contrast media reaction [Recovered/Resolved]

NARRATIVE: CASE EVENT DATE: 20171002
